FAERS Safety Report 4467883-0 (Version None)
Quarter: 2004Q4

REPORT INFORMATION
  Report Type: 
  Country: None (occurrence: None)
  Receive Date: 20041004
  Receipt Date: 20041004
  Transmission Date: 20050328
  Serious: Yes (Other)
  Sender: FDA-Public Use
  Company Number: None

PATIENT
  Sex: Male
  Weight: 43.5 kg

DRUGS (3)
  1. CEFTRIAXONE SODIUM [Suspect]
     Indication: EXTRADURAL ABSCESS
     Dosage: 2 GRAMS   EVERY 12 HOUR   INTRAVENOU
     Route: 042
     Dates: start: 20040919, end: 20040930
  2. VANCOMYCIN [Concomitant]
  3. RANITIDINE [Concomitant]

REACTIONS (4)
  - FEBRILE NEUTROPENIA [None]
  - INFUSION RELATED REACTION [None]
  - PYREXIA [None]
  - VOMITING [None]
